FAERS Safety Report 8289187-0 (Version None)
Quarter: 2012Q2

REPORT INFORMATION
  Report Type: 
  Country: None (occurrence: None)
  Receive Date: 20120417
  Receipt Date: 20120405
  Transmission Date: 20120825
  Serious: Yes (Other)
  Sender: FDA-Public Use
  Company Number: PHHY2012US031253

PATIENT

DRUGS (5)
  1. OXCARBAZEPINE [Suspect]
     Indication: EPILEPSY
     Dosage: 600MG IN THE MORNING AND 900MG AT NIGHT
  2. PREGABALIN [Suspect]
     Indication: EPILEPSY
     Dosage: 75 MG, QD
  3. OXCARBAZEPINE [Suspect]
     Dosage: 600 MG, BID
  4. OXCARBAZEPINE [Suspect]
     Dosage: 300MG IN THE MORNING AND 600MG AT NIGHT
  5. LAMOTRGINE [Suspect]
     Indication: EPILEPSY
     Dosage: 200MG IN THE MORNING AND 300MG AT NIGHT

REACTIONS (1)
  - TOXICITY TO VARIOUS AGENTS [None]
